FAERS Safety Report 17493410 (Version 2)
Quarter: 2020Q3

REPORT INFORMATION
  Report Type: Spontaneous
  Country: US (occurrence: US)
  Receive Date: 20200303
  Receipt Date: 20200702
  Transmission Date: 20201102
  Serious: No
  Sender: FDA-Public Use
  Company Number: US-AMNEAL PHARMACEUTICALS-2019-IPXL-00831

PATIENT
  Sex: Female

DRUGS (7)
  1. CARBIDOPA?LEVODOPA ER [Suspect]
     Active Substance: CARBIDOPA\LEVODOPA
     Indication: PARKINSON^S DISEASE
     Dosage: UNK
     Route: 065
     Dates: start: 201901, end: 201907
  2. RYTARY [Suspect]
     Active Substance: CARBIDOPA\LEVODOPA
     Dosage: 36.25?145MG, 1 CAPSULES, 4 /DAY
     Route: 048
     Dates: start: 20200522
  3. RYTARY [Suspect]
     Active Substance: CARBIDOPA\LEVODOPA
     Indication: PARKINSON^S DISEASE
     Dosage: UNK
     Route: 048
     Dates: start: 201812, end: 2019
  4. RYTARY [Suspect]
     Active Substance: CARBIDOPA\LEVODOPA
     Dosage: 48.75?195MG, 1 CAPSULES, 4 /DAY
     Route: 048
  5. RYTARY [Suspect]
     Active Substance: CARBIDOPA\LEVODOPA
     Dosage: 36.25?145MG, 3 DOSAGE FORM, 4 /DAY
     Route: 048
     Dates: start: 2019
  6. RYTARY [Suspect]
     Active Substance: CARBIDOPA\LEVODOPA
     Dosage: 36.25?145MG, 2 CAPSULES, 4 /DAY
     Route: 048
  7. RYTARY [Suspect]
     Active Substance: CARBIDOPA\LEVODOPA
     Dosage: 48.75?195MG, 2 CAPSULES, 4 /DAY
     Route: 048
     Dates: start: 20200522

REACTIONS (9)
  - Dysphonia [Unknown]
  - Therapeutic response shortened [Unknown]
  - Gait disturbance [Unknown]
  - Paraesthesia [Unknown]
  - Emotional disorder [Unknown]
  - Hypoaesthesia [Unknown]
  - Fatigue [Unknown]
  - Ill-defined disorder [Unknown]
  - Hypokinesia [Unknown]

NARRATIVE: CASE EVENT DATE: 2019
